FAERS Safety Report 22341034 (Version 1)
Quarter: 2023Q2

REPORT INFORMATION
  Report Type: Report from Study
  Country: US (occurrence: US)
  Receive Date: 20230518
  Receipt Date: 20230518
  Transmission Date: 20230722
  Serious: Yes (Hospitalization, Other)
  Sender: FDA-Public Use
  Company Number: US-ARGENX-2022-ARGX-US000719

PATIENT

DRUGS (2)
  1. VYVGART [Suspect]
     Active Substance: EFGARTIGIMOD ALFA-FCAB
     Indication: Myasthenia gravis
     Route: 042
  2. TYLENOL [Concomitant]
     Active Substance: ACETAMINOPHEN
     Indication: Headache

REACTIONS (8)
  - Spinal operation [Unknown]
  - Headache [Recovering/Resolving]
  - Fatigue [Unknown]
  - Muscle spasms [Recovering/Resolving]
  - Dystonia [Recovered/Resolved]
  - Heart rate increased [Unknown]
  - Therapy interrupted [Unknown]
  - Pneumocystis jirovecii infection [Unknown]

NARRATIVE: CASE EVENT DATE: 20220508
